FAERS Safety Report 5347954-7 (Version None)
Quarter: 2007Q2

REPORT INFORMATION
  Report Type: 
  Country: None (occurrence: None)
  Receive Date: 20070508
  Receipt Date: 20060607
  Transmission Date: 20071010
  Serious: Yes (Hospitalization)
  Sender: FDA-Public Use
  Company Number: 233593K06USA

PATIENT
  Age: 34 Year
  Sex: Female

DRUGS (4)
  1. REBIF [Suspect]
     Indication: MULTIPLE SCLEROSIS
     Dosage: 44 MCG, 3 IN 1 WEEKS, SUBCUTANEOUS
     Route: 058
     Dates: start: 20060201
  2. CELEXA [Concomitant]
  3. RISPERIDONE [Concomitant]
  4. PROPRANOLOL                         (PROPRANOLOL/00030001/) [Concomitant]

REACTIONS (7)
  - EATING DISORDER [None]
  - MENSTRUATION IRREGULAR [None]
  - MUSCLE SPASMS [None]
  - SENSATION OF HEAVINESS [None]
  - SUICIDAL IDEATION [None]
  - URINARY RETENTION [None]
  - WEIGHT DECREASED [None]
